FAERS Safety Report 12059686 (Version 2)
Quarter: 2016Q1

REPORT INFORMATION
  Report Type: Spontaneous
  Country: US (occurrence: US)
  Receive Date: 20160210
  Receipt Date: 20160308
  Transmission Date: 20160526
  Serious: Yes (Other)
  Sender: FDA-Public Use
  Company Number: US-TEVA-631855USA

PATIENT
  Age: 48 Year
  Sex: Female

DRUGS (14)
  1. OMEPRAZOLE. [Concomitant]
     Active Substance: OMEPRAZOLE
  2. CATAPRES-TTS [Concomitant]
     Active Substance: CLONIDINE
  3. ASPIRIN. [Concomitant]
     Active Substance: ASPIRIN
  4. COPAXONE [Suspect]
     Active Substance: GLATIRAMER ACETATE
     Indication: MULTIPLE SCLEROSIS
     Dosage: 1.9048 MILLIGRAM DAILY;
     Route: 058
     Dates: start: 20140425
  5. FETANYL [Concomitant]
  6. ALPRAZOLAM. [Concomitant]
     Active Substance: ALPRAZOLAM
  7. ADVAIR HFA [Concomitant]
     Active Substance: FLUTICASONE PROPIONATE\SALMETEROL XINAFOATE
  8. LISINOPRIL. [Concomitant]
     Active Substance: LISINOPRIL
  9. AMLODIPINE [Concomitant]
     Active Substance: AMLODIPINE BESYLATE
  10. CLONAZEPAM. [Concomitant]
     Active Substance: CLONAZEPAM
  11. SERTRALINE [Concomitant]
     Active Substance: SERTRALINE HYDROCHLORIDE
  12. HYDROCHOLORTHIAZIDE [Concomitant]
  13. GABAPENTIN. [Concomitant]
     Active Substance: GABAPENTIN
  14. OXYCODONE [Concomitant]
     Active Substance: OXYCODONE

REACTIONS (3)
  - Multiple sclerosis relapse [Recovered/Resolved]
  - Drug dose omission [Unknown]
  - Fall [Recovered/Resolved]

NARRATIVE: CASE EVENT DATE: 201601
